FAERS Safety Report 8475118-7 (Version None)
Quarter: 2012Q2

REPORT INFORMATION
  Report Type: 
  Country: None (occurrence: None)
  Receive Date: 20120628
  Receipt Date: 20120619
  Transmission Date: 20120825
  Serious: Yes (Other)
  Sender: FDA-Public Use
  Company Number: GB-JNJFOC-20120610548

PATIENT
  Age: 77 Year
  Sex: Female
  Weight: 95 kg

DRUGS (3)
  1. REMICADE [Suspect]
     Indication: RHEUMATOID ARTHRITIS
     Route: 042
     Dates: start: 20051212, end: 20060717
  2. METHOTREXATE [Concomitant]
     Indication: RHEUMATOID ARTHRITIS
  3. AZULFIDINE [Concomitant]
     Indication: RHEUMATOID ARTHRITIS

REACTIONS (1)
  - CHRONIC MYELOID LEUKAEMIA [None]
